FAERS Safety Report 5066437-5 (Version None)
Quarter: 2006Q3

REPORT INFORMATION
  Report Type: 
  Country: None (occurrence: None)
  Receive Date: 20060728
  Receipt Date: 20060718
  Transmission Date: 20061208
  Serious: Yes (Other)
  Sender: FDA-Public Use
  Company Number: 2006089636

PATIENT
  Age: 44 Year
  Sex: Female
  Weight: 65.7716 kg

DRUGS (8)
  1. ROLAIDS [Suspect]
     Indication: STOMACH DISCOMFORT
     Dosage: 2 TABLETS ONCE, ORAL
     Route: 048
     Dates: start: 20060717, end: 20060717
  2. LINSEED OIL (LINSEED OIL) [Concomitant]
  3. LOSARTAN POSTASSIUM [Concomitant]
  4. CONJUGATED ESTROGENS [Concomitant]
  5. LANSOPRAZOLE [Concomitant]
  6. MULTIVITAMINS (ASCORBIC ACID, ERGOCALCIFEROL, FOLIC ACID, NICOTINAMIDE [Concomitant]
  7. CALCIUM CARBONATE (CALCIUM CARBONATE) [Concomitant]
  8. LEVOSALBUTAMOL (LEVOSALBUTAMOL) [Concomitant]

REACTIONS (10)
  - ASTHMA [None]
  - EYE DISCHARGE [None]
  - EYE OEDEMA [None]
  - HYPERSENSITIVITY [None]
  - LACRIMATION INCREASED [None]
  - NASAL CONGESTION [None]
  - PRURITUS [None]
  - RASH MACULAR [None]
  - THROAT IRRITATION [None]
  - URTICARIA [None]
